FAERS Safety Report 9687946 (Version 3)
Quarter: 2014Q1

REPORT INFORMATION
  Report Type: Report from Study
  Country: JP (occurrence: JP)
  Receive Date: 20131114
  Receipt Date: 20140211
  Transmission Date: 20141002
  Serious: Yes (Other)
  Sender: FDA-Public Use
  Company Number: PHHY2013JP067654

PATIENT
  Age: 39 Year
  Sex: Male

DRUGS (1)
  1. AMN107 [Suspect]
     Indication: CHRONIC MYELOID LEUKAEMIA
     Dosage: 400 MG, UNK
     Dates: start: 20110318

REACTIONS (4)
  - Electrocardiogram QT prolonged [Recovered/Resolved]
  - Alanine aminotransferase increased [Recovered/Resolved]
  - Blood alkaline phosphatase increased [Recovered/Resolved]
  - Gamma-glutamyltransferase increased [Recovered/Resolved]
